FAERS Safety Report 25813785 (Version 1)
Quarter: 2025Q3

REPORT INFORMATION
  Report Type: Report from Study
  Country: BR (occurrence: BR)
  Receive Date: 20250917
  Receipt Date: 20250917
  Transmission Date: 20251021
  Serious: Yes (Other)
  Sender: JOHNSON AND JOHNSON
  Company Number: BR-JNJFOC-20250909134

PATIENT
  Age: 46 Year
  Sex: Male
  Weight: 48 kg

DRUGS (1)
  1. INFLIXIMAB [Suspect]
     Active Substance: INFLIXIMAB
     Indication: Crohn^s disease
     Dosage: 3 VIALS
     Route: 041

REACTIONS (2)
  - Intestinal stenosis [Unknown]
  - Crohn^s disease [Not Recovered/Not Resolved]
